FAERS Safety Report 6217571-5 (Version None)
Quarter: 2009Q2

REPORT INFORMATION
  Report Type: 
  Country: None (occurrence: None)
  Receive Date: 20090608
  Receipt Date: 20090303
  Transmission Date: 20091009
  Serious: No
  Sender: FDA-Public Use
  Company Number: A0771340A

PATIENT
  Age: 54 Year
  Sex: Male

DRUGS (3)
  1. WELLBUTRIN XL [Suspect]
     Indication: DEPRESSION
     Dosage: 450MG PER DAY
     Route: 048
     Dates: start: 20020101
  2. CLONAZEPAM [Concomitant]
  3. ZYPREXA [Concomitant]

REACTIONS (6)
  - ANXIETY [None]
  - DRUG INEFFECTIVE [None]
  - IRRITABILITY [None]
  - THERAPEUTIC RESPONSE UNEXPECTED [None]
  - TREMOR [None]
  - WITHDRAWAL SYNDROME [None]
